FAERS Safety Report 6516317-0 (Version None)
Quarter: 2009Q4

REPORT INFORMATION
  Report Type: 
  Country: None (occurrence: None)
  Receive Date: 20091223
  Receipt Date: 20091214
  Transmission Date: 20100525
  Serious: Yes (Other)
  Sender: FDA-Public Use
  Company Number: GB-TEVA-218450ISR

PATIENT
  Age: 38 Year
  Sex: Female

DRUGS (2)
  1. TAMOXIFEN CITRATE [Suspect]
     Route: 048
  2. GOSERELIN [Suspect]
     Indication: BREAST CANCER
     Route: 058

REACTIONS (1)
  - MULTIPLE SCLEROSIS RELAPSE [None]
